FAERS Safety Report 23823202 (Version 1)
Quarter: 2024Q2

REPORT INFORMATION
  Report Type: Spontaneous
  Country: GB (occurrence: None)
  Receive Date: 20240507
  Receipt Date: 20240507
  Transmission Date: 20240716
  Serious: Yes (Death)
  Sender: FDA-Public Use
  Company Number: None

PATIENT
  Age: 51 Year
  Sex: Male

DRUGS (8)
  1. AMPICILLIN [Suspect]
     Active Substance: AMPICILLIN
  2. METRONIDAZOLE [Suspect]
     Active Substance: METRONIDAZOLE
     Indication: Bacterial infection
     Route: 048
  3. OMEPRAZOLE [Suspect]
     Active Substance: OMEPRAZOLE
  4. SEMAGLUTIDE [Suspect]
     Active Substance: SEMAGLUTIDE
  5. COTRIMOXAZOLE [Suspect]
     Active Substance: SULFAMETHOXAZOLE\TRIMETHOPRIM
     Route: 048
  6. SULBACTAM [Suspect]
     Active Substance: SULBACTAM
     Route: 040
  7. CEFEPIME [Suspect]
     Active Substance: CEFEPIME HYDROCHLORIDE
     Route: 040
  8. ACETAMINOPHEN [Concomitant]
     Active Substance: ACETAMINOPHEN

REACTIONS (8)
  - Tachycardia [Not Recovered/Not Resolved]
  - Abdominal pain [Not Recovered/Not Resolved]
  - Abdominal distension [Not Recovered/Not Resolved]
  - Nausea [Not Recovered/Not Resolved]
  - Chills [Not Recovered/Not Resolved]
  - Cardiac arrest [Fatal]
  - Thrombosis [Not Recovered/Not Resolved]
  - Hepatic lesion [Not Recovered/Not Resolved]
